FAERS Safety Report 23402808 (Version 3)
Quarter: 2024Q1

REPORT INFORMATION
  Report Type: Report from Study
  Country: US (occurrence: US)
  Receive Date: 20240115
  Receipt Date: 20240122
  Transmission Date: 20240410
  Serious: Yes (Hospitalization)
  Sender: FDA-Public Use
  Company Number: US-ABBVIE-5588107

PATIENT
  Age: 53 Year
  Sex: Female
  Weight: 68.038 kg

DRUGS (2)
  1. RINVOQ [Suspect]
     Active Substance: UPADACITINIB
     Indication: Crohn^s disease
     Dosage: DRUG END DATE 2023
     Route: 048
     Dates: start: 20230501
  2. RINVOQ [Suspect]
     Active Substance: UPADACITINIB
     Indication: Crohn^s disease
     Dosage: DRUG START DATE 2023
     Route: 048

REACTIONS (6)
  - Clostridium difficile infection [Recovered/Resolved]
  - Gait inability [Unknown]
  - White blood cell count decreased [Recovered/Resolved]
  - Therapeutic product effect incomplete [Not Recovered/Not Resolved]
  - Wrong technique in product usage process [Unknown]
  - Arthritis [Unknown]

NARRATIVE: CASE EVENT DATE: 20230701
